FAERS Safety Report 12446942 (Version 1)
Quarter: 2016Q2

REPORT INFORMATION
  Report Type: Spontaneous
  Country: US (occurrence: None)
  Receive Date: 20160607
  Receipt Date: 20160607
  Transmission Date: 20160815
  Serious: Yes (Life-Threatening)
  Sender: FDA-Public Use
  Company Number: None

PATIENT
  Age: 44 Year
  Sex: Male
  Weight: 58.3 kg

DRUGS (1)
  1. PACLITAXEL. [Suspect]
     Active Substance: PACLITAXEL
     Indication: LUNG NEOPLASM MALIGNANT
     Route: 042
     Dates: start: 20151203, end: 20160106

REACTIONS (7)
  - Flushing [None]
  - Nausea [None]
  - Dyspnoea [None]
  - Vomiting [None]
  - Infusion related reaction [None]
  - Chest discomfort [None]
  - Hypotension [None]

NARRATIVE: CASE EVENT DATE: 20160106
